FAERS Safety Report 4651144-0 (Version None)
Quarter: 2005Q2

REPORT INFORMATION
  Report Type: 
  Country: None (occurrence: None)
  Receive Date: 20050503
  Receipt Date: 20050427
  Transmission Date: 20051028
  Serious: Yes (Hospitalization, Other)
  Sender: FDA-Public Use
  Company Number: US-JNJFOC-20040700375

PATIENT
  Age: 67 Year
  Sex: Female

DRUGS (13)
  1. LEVAQUIN [Suspect]
     Indication: DRUG USE FOR UNKNOWN INDICATION
     Dates: start: 20040412, end: 20040425
  2. NORVASC [Concomitant]
  3. ASPIRIN [Concomitant]
  4. ASPIRIN [Concomitant]
  5. ASPIRIN [Concomitant]
  6. GLUCOSAMINE [Concomitant]
  7. CHONDROITIN SULFATES [Concomitant]
  8. NIACIN [Concomitant]
  9. COQ 10 [Concomitant]
  10. MILK THISSEL [Concomitant]
  11. TYLENOL (CAPLET) [Concomitant]
     Dosage: ONCE OR TWICE DAILY
  12. VALTREX [Concomitant]
  13. VALIUM [Concomitant]

REACTIONS (3)
  - ARTHROPATHY [None]
  - LIGAMENT INJURY [None]
  - TENDON RUPTURE [None]
